FAERS Safety Report 9169822 (Version 2)
Quarter: 2013Q1

REPORT INFORMATION
  Report Type: Spontaneous
  Country: US (occurrence: US)
  Receive Date: 20130319
  Receipt Date: 20130322
  Transmission Date: 20140127
  Serious: Yes (Other)
  Sender: FDA-Public Use
  Company Number: US-009507513-1303USA007296

PATIENT
  Age: 56 Year
  Sex: Female

DRUGS (1)
  1. JANUMET [Suspect]
     Dosage: 50 MG, BID
     Route: 048

REACTIONS (1)
  - Pancreatic carcinoma [Unknown]
